FAERS Safety Report 21582872 (Version 1)
Quarter: 2022Q4

REPORT INFORMATION
  Report Type: Report from Study
  Country: US (occurrence: US)
  Receive Date: 20221111
  Receipt Date: 20221111
  Transmission Date: 20230112
  Serious: Yes (Other)
  Sender: FDA-Public Use
  Company Number: US-Ipsen Biopharmaceuticals, Inc.-2022-30688

PATIENT
  Age: 53 Year
  Sex: Female

DRUGS (1)
  1. SOMATULINE DEPOT [Suspect]
     Active Substance: LANREOTIDE ACETATE
     Indication: Pancreatic carcinoma
     Route: 058
     Dates: start: 201904

REACTIONS (4)
  - Neoplasm progression [Not Recovered/Not Resolved]
  - Emotional disorder [Not Recovered/Not Resolved]
  - Drug ineffective [Unknown]
  - Off label use [Unknown]

NARRATIVE: CASE EVENT DATE: 20190401
